FAERS Safety Report 9146681 (Version 1)
Quarter: 2013Q1

REPORT INFORMATION
  Report Type: Spontaneous
  Country: DK (occurrence: DK)
  Receive Date: 20130307
  Receipt Date: 20130307
  Transmission Date: 20140127
  Serious: Yes (Hospitalization)
  Sender: FDA-Public Use
  Company Number: PHHY2013DK021234

PATIENT
  Sex: Male

DRUGS (1)
  1. RITALIN [Suspect]
     Dosage: 10 MG, BID
     Dates: start: 201301, end: 201302

REACTIONS (2)
  - Fatigue [Recovered/Resolved]
  - Leukopenia [Recovered/Resolved]
